FAERS Safety Report 6421503-4 (Version None)
Quarter: 2009Q4

REPORT INFORMATION
  Report Type: 
  Country: None (occurrence: None)
  Receive Date: 20091030
  Receipt Date: 20090922
  Transmission Date: 20100525
  Serious: No
  Sender: FDA-Public Use
  Company Number: US-TYCO HEALTHCARE/MALLINCKRODT-T200901776

PATIENT
  Age: 35 Year
  Sex: Male
  Weight: 117.91 kg

DRUGS (6)
  1. OXYCODONE HCL EXTENDED-RELEASE [Suspect]
     Indication: PAIN
     Dosage: 120 MG (3 TABS), BID
     Route: 048
     Dates: start: 20090911
  2. OXYCONTIN [Concomitant]
     Indication: PAIN
     Dosage: 80 MG, BID
     Route: 048
  3. OXYCONTIN [Concomitant]
     Dosage: 120 MG, BID
     Route: 048
  4. OXYCONTIN [Concomitant]
     Dosage: 40 MG, 3 TABS, BID
     Route: 048
     Dates: start: 20080301, end: 20090901
  5. ZOLOFT [Concomitant]
     Dosage: 75 MG, QD
  6. BACLOFEN [Concomitant]
     Indication: MUSCLE SPASTICITY
     Dosage: 8 IN AM, 4 IN PM, 4 QHS
     Route: 048

REACTIONS (3)
  - ERYTHEMA [None]
  - PRURITUS [None]
  - RASH [None]
